FAERS Safety Report 7114487-7 (Version None)
Quarter: 2010Q4

REPORT INFORMATION
  Report Type: 
  Country: None (occurrence: None)
  Receive Date: 20101119
  Receipt Date: 20101112
  Transmission Date: 20110411
  Serious: Yes (Other)
  Sender: FDA-Public Use
  Company Number: US-RB-014339-10

PATIENT
  Age: 39 Year
  Sex: Male

DRUGS (1)
  1. SUBOXONE [Suspect]
     Indication: PRODUCT USED FOR UNKNOWN INDICATION
     Dosage: UNKNOWN DOSING DETAILS
     Route: 065

REACTIONS (12)
  - ABNORMAL LOSS OF WEIGHT [None]
  - BACK INJURY [None]
  - DECREASED APPETITE [None]
  - DEPRESSION [None]
  - INSOMNIA [None]
  - INTENTIONAL DRUG MISUSE [None]
  - JOINT SWELLING [None]
  - PANIC ATTACK [None]
  - PARANOIA [None]
  - POOR PERSONAL HYGIENE [None]
  - SUICIDAL IDEATION [None]
  - SUICIDE ATTEMPT [None]
